FAERS Safety Report 8777879 (Version 5)
Quarter: 2013Q3

REPORT INFORMATION
  Report Type: Report from Study
  Country: US (occurrence: US)
  Receive Date: 20120911
  Receipt Date: 20130807
  Transmission Date: 20140515
  Serious: Yes (Other)
  Sender: FDA-Public Use
  Company Number: PHEH2012US014116

PATIENT
  Age: 55 Year
  Sex: Female
  Weight: 68.93 kg

DRUGS (6)
  1. GILENYA [Suspect]
     Indication: MULTIPLE SCLEROSIS
     Dosage: 0.5 MG, QD
     Route: 048
     Dates: start: 20120717
  2. KLONOPIN [Concomitant]
     Dosage: 2 MG, TID
     Route: 048
  3. TRAZODONE HYDROCHLORIDE [Concomitant]
     Dosage: 150 MG, BID
     Route: 048
  4. SYNTHROID [Concomitant]
     Dosage: 150 UG, QD
     Route: 048
  5. BACLOFEN [Concomitant]
     Dosage: 10 MG, QD
     Route: 048
  6. VICODIN ES [Concomitant]
     Dosage: 1 DF, TID
     Route: 048

REACTIONS (5)
  - Electrocardiogram QT prolonged [Unknown]
  - Sinus bradycardia [Unknown]
  - Electrocardiogram ST segment abnormal [Unknown]
  - Dizziness [Not Recovered/Not Resolved]
  - Headache [Recovered/Resolved]
